FAERS Safety Report 7947855-1 (Version None)
Quarter: 2011Q4

REPORT INFORMATION
  Report Type: 
  Country: None (occurrence: None)
  Receive Date: 20111125
  Receipt Date: 20111118
  Transmission Date: 20120403
  Serious: Yes (Death, Life-Threatening, Other)
  Sender: FDA-Public Use
  Company Number: 2010SP047414

PATIENT
  Age: 74 Year
  Sex: Female
  Weight: 59.1 kg

DRUGS (62)
  1. TEMODAL [Suspect]
     Indication: ANAPLASTIC ASTROCYTOMA
     Dosage: 75 MG/M2:QD;PO, 150 MG/M2;QD;PO, 200 MG/M2;QD;PO, 150 MG/M2;QD;PO, 100 MG/M2;QD;PO
     Route: 048
     Dates: start: 20091109, end: 20091113
  2. TEMODAL [Suspect]
     Indication: ANAPLASTIC ASTROCYTOMA
     Dosage: 75 MG/M2:QD;PO, 150 MG/M2;QD;PO, 200 MG/M2;QD;PO, 150 MG/M2;QD;PO, 100 MG/M2;QD;PO
     Route: 048
     Dates: start: 20090601, end: 20090712
  3. TEMODAL [Suspect]
     Indication: ANAPLASTIC ASTROCYTOMA
     Dosage: 75 MG/M2:QD;PO, 150 MG/M2;QD;PO, 200 MG/M2;QD;PO, 150 MG/M2;QD;PO, 100 MG/M2;QD;PO
     Route: 048
     Dates: start: 20090914, end: 20090918
  4. TEMODAL [Suspect]
     Indication: ANAPLASTIC ASTROCYTOMA
     Dosage: 75 MG/M2:QD;PO, 150 MG/M2;QD;PO, 200 MG/M2;QD;PO, 150 MG/M2;QD;PO, 100 MG/M2;QD;PO
     Route: 048
     Dates: start: 20090810, end: 20090814
  5. TEMODAL [Suspect]
     Indication: ANAPLASTIC ASTROCYTOMA
     Dosage: 75 MG/M2:QD;PO, 150 MG/M2;QD;PO, 200 MG/M2;QD;PO, 150 MG/M2;QD;PO, 100 MG/M2;QD;PO
     Route: 048
     Dates: start: 20091012, end: 20091016
  6. MOBENZOCIN [Concomitant]
  7. CORTRIL [Suspect]
     Indication: CEREBRAL ATROPHY
     Dosage: PO; PO
     Route: 048
     Dates: start: 20090901, end: 20090922
  8. CORTRIL [Suspect]
     Indication: CEREBRAL ATROPHY
     Dosage: PO; PO
     Route: 048
     Dates: start: 20091014, end: 20091110
  9. EBRANTIL [Concomitant]
  10. AMOXICILLIN [Concomitant]
  11. DIAZEPAM [Concomitant]
  12. PHENYTOIN SODIUM CAP [Concomitant]
  13. STRONGER NEO-MINOPHAGEN C [Concomitant]
  14. ATARAX [Concomitant]
  15. PIPERACILLIN SODIUM [Concomitant]
  16. RAMELTEON [Concomitant]
  17. MYSTAN [Concomitant]
  18. GENTAMICIN SULFATE [Concomitant]
  19. CRAVIT (LEVOFLOXACIN HYDRATE) [Concomitant]
  20. ZONISAMIDE [Concomitant]
  21. TEGRETOL [Concomitant]
  22. ENTERON R (ANTIBIOTICS-RESISTANT LACTIC ACID BACTERIAE) [Concomitant]
  23. SEFIROM [Concomitant]
  24. SOLYUGEN G (ACETATED RINGER'S SOLUTION WITH GLUCOSE 1) [Concomitant]
  25. WATER FOR INJECTIONS [Concomitant]
  26. MUCOSIL-10 [Concomitant]
  27. SEFMAZON [Concomitant]
  28. SOLDEM 3A (MAINTENANCE MEDIUM 3) [Concomitant]
  29. AMLODIN OD [Concomitant]
  30. BETAMETHASONE [Suspect]
     Indication: CEREBRAL ATROPHY
     Dosage: PO; PO; PO
     Route: 048
     Dates: start: 20090808, end: 20090811
  31. BETAMETHASONE [Suspect]
     Indication: CEREBRAL ATROPHY
     Dosage: PO; PO; PO
     Route: 048
     Dates: start: 20090901, end: 20090909
  32. BETAMETHASONE [Suspect]
     Indication: CEREBRAL ATROPHY
     Dosage: PO; PO; PO
     Route: 048
     Dates: start: 20091014, end: 20091024
  33. OLMESARTAN MEDOXOMIL [Concomitant]
  34. DECADRON [Concomitant]
  35. GABAPENTIN [Concomitant]
  36. HEPAFLUSH [Concomitant]
  37. ZOSYN [Concomitant]
  38. SODIUM CHLORIDE [Concomitant]
  39. PHENOBARBITAL TAB [Concomitant]
  40. JUZEN-TAIHO-TO [Concomitant]
  41. PREDOPA [Concomitant]
  42. ISOTONIC SODIUM CHLORIDE SOLUTION [Concomitant]
  43. ISOTONIC SODIUM CHLORIDE SOLUTION [Concomitant]
  44. BETAMETHASONE SODIUM PHOSPHATE [Suspect]
     Indication: CEREBRAL ATROPHY
     Dosage: IV; IV; IV
     Route: 042
     Dates: start: 20090825, end: 20090829
  45. BETAMETHASONE SODIUM PHOSPHATE [Suspect]
     Indication: CEREBRAL ATROPHY
     Dosage: IV; IV; IV
     Route: 042
     Dates: start: 20090820, end: 20090831
  46. BETAMETHASONE SODIUM PHOSPHATE [Suspect]
     Indication: CEREBRAL ATROPHY
     Dosage: IV; IV; IV
     Route: 042
     Dates: start: 20090910, end: 20090925
  47. LANSOPRAZOLE [Concomitant]
  48. RINDERON-VG [Concomitant]
  49. ZOLPIDEM [Concomitant]
  50. SOLDEN (3A MAINTENANCE MEDIUM 3) [Concomitant]
  51. LACTULOSE [Concomitant]
  52. AMINOLEBAN (AMINO ACID PREPARATIONS FOR HEPATIC INSUFFICIENCY 1) [Concomitant]
  53. PHOHEPARUM [Concomitant]
  54. BETAMETHASONE SODIUM PHOSPHATE [Suspect]
     Indication: CEREBRAL ATROPHY
     Dosage: IV
     Route: 042
     Dates: start: 20090820, end: 20090831
  55. PRIMPERAN TAB [Concomitant]
  56. VANCOMYCIN HYCHLORIDE [Concomitant]
  57. ASPARA (L-ASPARTATE POTASSIUM) [Concomitant]
  58. BACTRIM [Concomitant]
  59. SELOKEN L [Concomitant]
  60. DEPAKENE [Concomitant]
  61. UBRETID [Concomitant]
  62. LACTEC (LACTATED RINGER'S SOLUTION) [Concomitant]

REACTIONS (7)
  - ANAEMIA [None]
  - DEVICE RELATED INFECTION [None]
  - HYPOALBUMINAEMIA [None]
  - THROMBOCYTOPENIA [None]
  - OROPHARYNGEAL CANDIDIASIS [None]
  - CEREBRAL ATROPHY [None]
  - OLIGURIA [None]
